FAERS Safety Report 19479519 (Version 3)
Quarter: 2023Q2

REPORT INFORMATION
  Report Type: Spontaneous
  Country: US (occurrence: US)
  Receive Date: 20210701
  Receipt Date: 20230406
  Transmission Date: 20230722
  Serious: Yes (Other)
  Sender: FDA-Public Use
  Company Number: US-CIPLA LTD.-2021US04350

PATIENT

DRUGS (2)
  1. CARBOPLATIN [Suspect]
     Active Substance: CARBOPLATIN
     Indication: Germ cell cancer
     Dosage: UNK, 3 OF 4 PLANNED CYCLES
     Route: 065
  2. ETOPOSIDE [Suspect]
     Active Substance: ETOPOSIDE
     Indication: Germ cell cancer
     Dosage: UNK, 3 OF 4 PLANNED CYCLES
     Route: 065

REACTIONS (9)
  - Clostridium difficile infection [Unknown]
  - Bacterial tracheitis [Unknown]
  - Epiglottitis [Unknown]
  - Cerebrovascular accident [Unknown]
  - Febrile neutropenia [Unknown]
  - Agitation [Unknown]
  - Aggression [Unknown]
  - Frustration tolerance decreased [Unknown]
  - Impulse-control disorder [Unknown]
